FAERS Safety Report 23920726 (Version 1)
Quarter: 2024Q2

REPORT INFORMATION
  Report Type: Spontaneous
  Country: US (occurrence: US)
  Receive Date: 20240530
  Receipt Date: 20240530
  Transmission Date: 20240716
  Serious: Yes (Disabling, Other)
  Sender: FDA-Public Use
  Company Number: US-REGENERON PHARMACEUTICALS, INC.-2024-078986

PATIENT
  Sex: Female

DRUGS (1)
  1. EYLEA [Suspect]
     Active Substance: AFLIBERCEPT
     Indication: Diabetic retinopathy
     Dosage: 2 MG, EVERY 4 TO 6 WEEKS, FORMULATION: 2 MG (UNKNOWN)

REACTIONS (5)
  - Blindness unilateral [Unknown]
  - Cataract [Unknown]
  - Transplant [Unknown]
  - Eye haemorrhage [Unknown]
  - Memory impairment [Not Recovered/Not Resolved]
